FAERS Safety Report 12621181 (Version 1)
Quarter: 2016Q3

REPORT INFORMATION
  Report Type: Spontaneous
  Country: US (occurrence: None)
  Receive Date: 20160803
  Receipt Date: 20160803
  Transmission Date: 20161109
  Serious: No
  Sender: FDA-Public Use
  Company Number: None

PATIENT
  Age: 33 Year
  Sex: Female
  Weight: 108.86 kg

DRUGS (2)
  1. TYLENOL [Concomitant]
     Active Substance: ACETAMINOPHEN
  2. NEXPLANON [Suspect]
     Active Substance: ETONOGESTREL

REACTIONS (4)
  - Menorrhagia [None]
  - Polymenorrhoea [None]
  - Dysmenorrhoea [None]
  - Depression [None]

NARRATIVE: CASE EVENT DATE: 20160726
